FAERS Safety Report 5116268-2 (Version None)
Quarter: 2006Q3

REPORT INFORMATION
  Report Type: 
  Country: None (occurrence: None)
  Receive Date: 20060927
  Receipt Date: 20060921
  Transmission Date: 20061208
  Serious: Yes (Other)
  Sender: FDA-Public Use
  Company Number: BE-GLAXOSMITHKLINE-B0439766A

PATIENT
  Age: 57 Year

DRUGS (1)
  1. AVANDIA [Suspect]

REACTIONS (5)
  - BLOOD TRIGLYCERIDES INCREASED [None]
  - HEPATIC STEATOSIS [None]
  - HIGH DENSITY LIPOPROTEIN DECREASED [None]
  - HYPERGLYCAEMIA [None]
  - TRANSAMINASES INCREASED [None]
